FAERS Safety Report 12594835 (Version 1)
Quarter: 2016Q3

REPORT INFORMATION
  Report Type: Spontaneous
  Country: US (occurrence: US)
  Receive Date: 20160726
  Receipt Date: 20160726
  Transmission Date: 20161109
  Serious: No
  Sender: FDA-Public Use
  Company Number: US-UNITED THERAPEUTICS-UNT-2015-016558

PATIENT
  Sex: Female

DRUGS (1)
  1. ORENITRAM [Suspect]
     Active Substance: TREPROSTINIL
     Indication: PULMONARY ARTERIAL HYPERTENSION
     Dosage: 2 MG, BID
     Route: 048
     Dates: start: 20150815

REACTIONS (6)
  - Vomiting [Unknown]
  - Headache [Unknown]
  - Nausea [Unknown]
  - Pyrexia [Unknown]
  - Cough [Unknown]
  - Influenza like illness [Unknown]

NARRATIVE: CASE EVENT DATE: 20151223
